FAERS Safety Report 7021894-X (Version None)
Quarter: 2010Q3

REPORT INFORMATION
  Report Type: 
  Country: None (occurrence: None)
  Receive Date: 20100930
  Receipt Date: 20100920
  Transmission Date: 20110219
  Serious: Yes (Hospitalization, Other)
  Sender: FDA-Public Use
  Company Number: US-ELI_LILLY_AND_COMPANY-US201004004278

PATIENT
  Sex: Female

DRUGS (12)
  1. FORTEO [Suspect]
     Indication: OSTEOPOROSIS
     Dosage: 20 UG, DAILY (1/D)
     Route: 065
     Dates: start: 20100406
  2. FORTEO [Suspect]
     Dosage: 20 UG, DAILY (1/D)
     Route: 065
  3. FORTEO [Suspect]
     Dosage: 20 UG, DAILY (1/D)
     Route: 065
  4. FORTEO [Suspect]
     Dosage: 20 UG, DAILY (1/D)
     Dates: end: 20100717
  5. CORTICOSTEROIDS [Concomitant]
  6. COREG [Concomitant]
  7. PREVACID [Concomitant]
  8. PREMARIN [Concomitant]
  9. CALCIUM [Concomitant]
  10. VITAMIN D [Concomitant]
  11. VITAMIN E [Concomitant]
  12. FISH OIL [Concomitant]

REACTIONS (22)
  - BALANCE DISORDER [None]
  - BLINDNESS [None]
  - BLOOD SODIUM DECREASED [None]
  - DIZZINESS [None]
  - ENTROPION [None]
  - EYE INFECTION [None]
  - EYE INJURY [None]
  - FALL [None]
  - FEAR [None]
  - GAIT DISTURBANCE [None]
  - HEAD INJURY [None]
  - HOSPITALISATION [None]
  - HYPERSENSITIVITY [None]
  - HYPOTHYROIDISM [None]
  - INJURY [None]
  - MALAISE [None]
  - NAUSEA [None]
  - PAIN [None]
  - PELVIC FRACTURE [None]
  - SKIN INJURY [None]
  - SWELLING FACE [None]
  - VISUAL ACUITY REDUCED [None]
